FAERS Safety Report 4563265-1 (Version None)
Quarter: 2005Q1

REPORT INFORMATION
  Report Type: 
  Country: None (occurrence: None)
  Receive Date: 20050121
  Receipt Date: 20050117
  Transmission Date: 20050727
  Serious: Yes (Death, Hospitalization)
  Sender: FDA-Public Use
  Company Number: FRWYE347017JAN05

PATIENT
  Age: 45 Year
  Sex: Male

DRUGS (4)
  1. EFFEXOR XR [Suspect]
     Indication: GENERALISED ANXIETY DISORDER
     Dosage: SEE IMAGE
     Route: 048
     Dates: start: 20030901, end: 20040501
  2. EFFEXOR XR [Suspect]
     Indication: GENERALISED ANXIETY DISORDER
     Dosage: SEE IMAGE
     Route: 048
     Dates: start: 20040501, end: 20040601
  3. OXAZEPAM [Suspect]
     Indication: GENERALISED ANXIETY DISORDER
     Dosage: 50 MG 3XPER 1 DAY
     Route: 048
  4. STABLON (TIANEPTINE, TABLET, 0) [Suspect]
     Indication: GENERALISED ANXIETY DISORDER
     Dosage: 3 TABLET 1X PER 1 DAY
     Route: 048
     Dates: start: 20040601

REACTIONS (4)
  - CARDIAC ARREST [None]
  - DRUG INEFFECTIVE [None]
  - HYPERTENSION [None]
  - SUDDEN DEATH [None]
